FAERS Safety Report 5256353-8 (Version None)
Quarter: 2007Q1

REPORT INFORMATION
  Report Type: 
  Country: None (occurrence: None)
  Receive Date: 20070301
  Receipt Date: 20070222
  Transmission Date: 20070707
  Serious: Yes (Hospitalization)
  Sender: FDA-Public Use
  Company Number: 236026

PATIENT
  Age: 66 Year
  Sex: Female
  Weight: 93 kg

DRUGS (8)
  1. OMALIZUMAB (OMALIZUMAB) PWDR + SOLVENT, INJECTION SOLN, 150MG [Suspect]
     Indication: ASTHMA
     Dosage: 300 MG, Q4W, SUBCUTANEOUS
     Route: 058
     Dates: start: 20040530
  2. ADVAIR DISKUS 100/50 [Concomitant]
  3. SINGULAIR [Concomitant]
  4. MICARDIS [Concomitant]
  5. LESCOL XL [Concomitant]
  6. SYNTHROID [Concomitant]
  7. NEXIUM [Concomitant]
  8. FOLIC ACID [Concomitant]

REACTIONS (2)
  - ENTEROCOLITIS INFECTIOUS [None]
  - RECTAL HAEMORRHAGE [None]
